FAERS Safety Report 8930317 (Version 2)
Quarter: 2012Q4

REPORT INFORMATION
  Report Type: 
  Country: US (occurrence: US)
  Receive Date: 20121128
  Receipt Date: 20121231
  Transmission Date: 20130627
  Serious: Yes (Other)
  Sender: FDA-Public Use
  Company Number: US-ENDO PHARMACEUTICALS INC.-METH20120014

PATIENT
  Sex: Male

DRUGS (2)
  1. METHYLPREDNISOLONE TABLETS [Suspect]
     Indication: PAIN
     Dosage: UNK
     Route: 048
     Dates: start: 201209, end: 2012
  2. DEPO-MEDROL [Suspect]
     Indication: PAIN
     Route: 008

REACTIONS (4)
  - Pulmonary embolism [Unknown]
  - Heart rate increased [Unknown]
  - Oedema peripheral [Unknown]
  - Blood glucose increased [Unknown]
